FAERS Safety Report 15666385 (Version 1)
Quarter: 2018Q4

REPORT INFORMATION
  Report Type: Report from Study
  Country: CO (occurrence: CO)
  Receive Date: 20181128
  Receipt Date: 20181128
  Transmission Date: 20190205
  Serious: Yes (Hospitalization, Other)
  Sender: FDA-Public Use
  Company Number: CO-SHIRE-CO201842691

PATIENT

DRUGS (1)
  1. VPRIV [Suspect]
     Active Substance: VELAGLUCERASE ALFA
     Indication: GAUCHER^S DISEASE
     Dosage: 2600 IU, EVERY 15 DAYS
     Route: 042
     Dates: start: 201704, end: 20181018

REACTIONS (4)
  - Pleural effusion [Recovering/Resolving]
  - Chest pain [Unknown]
  - Pneumonia [Recovering/Resolving]
  - Pectus carinatum [Recovering/Resolving]

NARRATIVE: CASE EVENT DATE: 20181025
